FAERS Safety Report 14312417 (Version 8)
Quarter: 2018Q2

REPORT INFORMATION
  Report Type: Spontaneous
  Country: DE (occurrence: DE)
  Receive Date: 20171221
  Receipt Date: 20180508
  Transmission Date: 20180711
  Serious: Yes (Death, Hospitalization, Other)
  Sender: FDA-Public Use
  Company Number: DE-AUROBINDO-AUR-APL-2017-45285

PATIENT
  Age: 78 Year
  Sex: Male

DRUGS (107)
  1. QUETIAPINE. [Suspect]
     Active Substance: QUETIAPINE
     Dosage: (DOSE INCREASED)
     Route: 048
     Dates: start: 2016, end: 2016
  2. PAROXETINE. [Suspect]
     Active Substance: PAROXETINE
     Dosage: UNK
     Route: 065
  3. PAROXETINE. [Suspect]
     Active Substance: PAROXETINE
     Dosage: ()
  4. DEXTROMETHORPHAN HYDROBROMIDE. [Suspect]
     Active Substance: DEXTROMETHORPHAN HYDROBROMIDE
     Indication: DELIRIUM
     Dosage: ()
     Route: 065
  5. FLUPENTIXOL [Suspect]
     Active Substance: FLUPENTIXOL
     Indication: AGGRESSION
     Dosage: DOSE INCREASED
     Route: 065
  6. FLUPENTIXOL [Suspect]
     Active Substance: FLUPENTIXOL
     Dosage: (HIGH DOSE)
     Route: 048
  7. RIVASTIGMINE. [Concomitant]
     Active Substance: RIVASTIGMINE
     Dosage: ()
  8. RIVASTIGMINE. [Concomitant]
     Active Substance: RIVASTIGMINE
     Dosage: ()
  9. RIVASTIGMINE. [Concomitant]
     Active Substance: RIVASTIGMINE
     Dosage: ()
  10. DONEPEZIL. [Concomitant]
     Active Substance: DONEPEZIL
     Dosage: ()
     Route: 065
  11. DONEPEZIL. [Concomitant]
     Active Substance: DONEPEZIL
     Dosage: ()
  12. MIRTAZAPINE. [Concomitant]
     Active Substance: MIRTAZAPINE
     Dosage: (HIGH DOSE) ()
     Route: 065
  13. TRAZODONE [Concomitant]
     Active Substance: TRAZODONE HYDROCHLORIDE
     Indication: AGGRESSION
     Dosage: (HIGH DOSE) ()
     Route: 065
  14. QUETIAPINE. [Suspect]
     Active Substance: QUETIAPINE
     Dosage: 100 MG, QD
     Route: 065
  15. DONEPEZIL. [Concomitant]
     Active Substance: DONEPEZIL
     Dosage: ()
  16. DONEPEZIL. [Concomitant]
     Active Substance: DONEPEZIL
     Dosage: ()
     Route: 065
  17. DONEPEZIL. [Concomitant]
     Active Substance: DONEPEZIL
     Dosage: ()
  18. QUETIAPINE. [Suspect]
     Active Substance: QUETIAPINE
     Dosage: 100 MG, QD
     Route: 065
  19. SPIRIVA [Suspect]
     Active Substance: TIOTROPIUM BROMIDE MONOHYDRATE
     Indication: PNEUMONIA
     Dosage: UNK ()
     Route: 065
     Dates: start: 201601
  20. DRONABINOL. [Concomitant]
     Active Substance: DRONABINOL
     Indication: DEMENTIA WITH LEWY BODIES
     Dosage: 2.5 MG, DAILY
     Dates: start: 20160101
  21. DRONABINOL. [Concomitant]
     Active Substance: DRONABINOL
     Dosage: 15 UNK
  22. DRONABINOL. [Concomitant]
     Active Substance: DRONABINOL
     Dosage: ()
     Route: 065
  23. RIVASTIGMINE. [Concomitant]
     Active Substance: RIVASTIGMINE
     Dosage: ()
     Route: 065
  24. RIVASTIGMINE. [Concomitant]
     Active Substance: RIVASTIGMINE
     Dosage: ()
  25. DONEPEZIL. [Concomitant]
     Active Substance: DONEPEZIL
     Indication: AGGRESSION
     Dosage: UNK
     Route: 065
  26. DONEPEZIL. [Concomitant]
     Active Substance: DONEPEZIL
     Indication: DEMENTIA WITH LEWY BODIES
     Dosage: ()
     Route: 065
  27. DONEPEZIL. [Concomitant]
     Active Substance: DONEPEZIL
     Dosage: ()
  28. DONEPEZIL. [Concomitant]
     Active Substance: DONEPEZIL
     Dosage: ()
     Route: 065
  29. MIRTAZAPINE. [Concomitant]
     Active Substance: MIRTAZAPINE
     Indication: DELIRIUM
     Dosage: (HIGH DOSE)
     Route: 065
  30. PAROXETINE. [Suspect]
     Active Substance: PAROXETINE
     Indication: AGGRESSION
     Dosage: ()
  31. PAROXETINE. [Suspect]
     Active Substance: PAROXETINE
     Indication: DELIRIUM
     Dosage: ()
  32. LORAZEPAM. [Suspect]
     Active Substance: LORAZEPAM
     Dosage: ()
  33. DEXTROMETHORPHAN HYDROBROMIDE. [Suspect]
     Active Substance: DEXTROMETHORPHAN HYDROBROMIDE
     Indication: AGITATION
  34. DEXTROMETHORPHAN HYDROBROMIDE. [Suspect]
     Active Substance: DEXTROMETHORPHAN HYDROBROMIDE
     Indication: DELIRIUM
  35. DRONABINOL. [Concomitant]
     Active Substance: DRONABINOL
     Dosage: 15 MG, QD
     Route: 065
     Dates: start: 2016
  36. RIVASTIGMINE. [Concomitant]
     Active Substance: RIVASTIGMINE
     Indication: DELIRIUM
     Dosage: ()
     Route: 065
  37. RIVASTIGMINE. [Concomitant]
     Active Substance: RIVASTIGMINE
     Dosage: ()
     Route: 065
  38. RIVASTIGMINE. [Concomitant]
     Active Substance: RIVASTIGMINE
     Dosage: ()
  39. RIVASTIGMINE. [Concomitant]
     Active Substance: RIVASTIGMINE
     Dosage: ()
  40. DONEPEZIL. [Concomitant]
     Active Substance: DONEPEZIL
     Indication: DELIRIUM
     Dosage: ()
  41. DONEPEZIL. [Concomitant]
     Active Substance: DONEPEZIL
     Route: 065
  42. DONEPEZIL. [Concomitant]
     Active Substance: DONEPEZIL
     Dosage: ()
     Route: 065
  43. QUETIAPINE. [Suspect]
     Active Substance: QUETIAPINE
     Indication: DEMENTIA WITH LEWY BODIES
     Dosage: 100 MG/D (FINAL DOSE)
     Route: 048
     Dates: start: 2017
  44. PAROXETINE. [Suspect]
     Active Substance: PAROXETINE
     Dosage: ()
  45. PAROXETINE. [Suspect]
     Active Substance: PAROXETINE
     Dosage: ()
  46. DRONABINOL. [Concomitant]
     Active Substance: DRONABINOL
     Indication: AGGRESSION
     Dosage: DOSE RANGING FROM 2.5-15 MG/D2
     Route: 065
  47. DRONABINOL. [Concomitant]
     Active Substance: DRONABINOL
     Dosage: ()
     Route: 065
  48. RIVASTIGMINE. [Concomitant]
     Active Substance: RIVASTIGMINE
     Dosage: ()
     Route: 065
  49. RIVASTIGMINE. [Concomitant]
     Active Substance: RIVASTIGMINE
     Dosage: ()
     Route: 065
  50. TRAZODONE [Concomitant]
     Active Substance: TRAZODONE HYDROCHLORIDE
     Indication: DELIRIUM
     Dosage: (HIGH DOSE) ()
     Route: 065
  51. AMISULPRIDE [Concomitant]
     Active Substance: AMISULPRIDE
     Indication: PRODUCT USED FOR UNKNOWN INDICATION
     Dosage: ()
     Route: 065
  52. CARBAMAZEPIN [Concomitant]
     Active Substance: CARBAMAZEPINE
     Indication: PRODUCT USED FOR UNKNOWN INDICATION
     Dosage: ()
     Route: 065
  53. BENPERIDOL [Concomitant]
     Active Substance: BENPERIDOL
     Indication: PRODUCT USED FOR UNKNOWN INDICATION
     Dosage: ()
     Route: 065
  54. ZUCLOPENTHIXOL [Concomitant]
     Active Substance: ZUCLOPENTHIXOL
     Indication: PRODUCT USED FOR UNKNOWN INDICATION
     Dosage: ()
     Route: 065
  55. AMPICILLIN AND SULBACTAM [Suspect]
     Active Substance: AMPICILLIN SODIUM\SULBACTAM SODIUM
     Indication: PNEUMONIA
     Dosage: UNK
     Route: 065
     Dates: start: 201601
  56. LORAZEPAM. [Suspect]
     Active Substance: LORAZEPAM
     Indication: DELIRIUM
     Dosage: UNK UNK, QD (1)
     Route: 065
     Dates: start: 2016
  57. LORAZEPAM. [Suspect]
     Active Substance: LORAZEPAM
     Indication: DEMENTIA WITH LEWY BODIES
     Dosage: ()
  58. FLUPENTIXOL [Suspect]
     Active Substance: FLUPENTIXOL
     Indication: DEMENTIA WITH LEWY BODIES
     Dosage: 20 MG, UNK
     Route: 048
  59. FLUPENTIXOL [Suspect]
     Active Substance: FLUPENTIXOL
     Dosage: ()
     Route: 048
  60. DRONABINOL. [Concomitant]
     Active Substance: DRONABINOL
     Indication: DELIRIUM
     Dosage: 15 MILLIGRAM
     Route: 065
  61. DRONABINOL. [Concomitant]
     Active Substance: DRONABINOL
     Dosage: 2.5 MILLIGRAM
     Route: 065
  62. RIVASTIGMINE. [Concomitant]
     Active Substance: RIVASTIGMINE
     Dosage: ()
     Route: 065
  63. DONEPEZIL. [Concomitant]
     Active Substance: DONEPEZIL
     Dosage: ()
     Route: 065
  64. CLOZAPINE. [Concomitant]
     Active Substance: CLOZAPINE
     Indication: PRODUCT USED FOR UNKNOWN INDICATION
     Dosage: ()
     Route: 065
  65. QUETIAPINE. [Suspect]
     Active Substance: QUETIAPINE
     Dosage: 150 MG, QD
     Route: 065
  66. QUETIAPINE. [Suspect]
     Active Substance: QUETIAPINE
     Dosage: 150 MG, QD
     Route: 065
  67. QUETIAPINE. [Suspect]
     Active Substance: QUETIAPINE
     Dosage: AS HIGH AS TOLERATED ()
     Route: 065
  68. PAROXETINE. [Suspect]
     Active Substance: PAROXETINE
     Indication: DELIRIUM
     Dosage: 10 MG
     Route: 065
  69. PAROXETINE. [Suspect]
     Active Substance: PAROXETINE
     Dosage: ()
  70. PAROXETINE. [Suspect]
     Active Substance: PAROXETINE
     Dosage: ()
  71. DEXTROMETHORPHAN HYDROBROMIDE. [Suspect]
     Active Substance: DEXTROMETHORPHAN HYDROBROMIDE
     Indication: AGGRESSION
     Dosage: DOSE INCREASED, DIVIDED INTO 2 DOSAGES
     Dates: start: 2017
  72. FLUPENTIXOL [Suspect]
     Active Substance: FLUPENTIXOL
     Indication: DELIRIUM
     Dosage: (HIGH DOSE)
     Route: 048
  73. FLUPENTIXOL [Suspect]
     Active Substance: FLUPENTIXOL
     Dosage: 20 MILLIGRAM
     Route: 048
  74. DRONABINOL. [Concomitant]
     Active Substance: DRONABINOL
     Indication: DELIRIUM
     Dosage: 15 MG, UNK
     Route: 065
     Dates: start: 20160201
  75. DRONABINOL. [Concomitant]
     Active Substance: DRONABINOL
     Dosage: UNK
     Dates: start: 2016
  76. RIVASTIGMINE. [Concomitant]
     Active Substance: RIVASTIGMINE
     Indication: PRODUCT USED FOR UNKNOWN INDICATION
     Dosage: UNK
     Route: 065
  77. DIAZEPAM. [Concomitant]
     Active Substance: DIAZEPAM
     Dosage: (HIGH DOSE) ()
  78. DONEPEZIL. [Concomitant]
     Active Substance: DONEPEZIL
     Dosage: ()
  79. DONEPEZIL. [Concomitant]
     Active Substance: DONEPEZIL
     Dosage: ()
  80. DONEPEZIL. [Concomitant]
     Active Substance: DONEPEZIL
     Dosage: ()
  81. DONEPEZIL. [Concomitant]
     Active Substance: DONEPEZIL
     Dosage: ()
  82. MIRTAZAPINE. [Concomitant]
     Active Substance: MIRTAZAPINE
     Indication: AGGRESSION
     Dosage: (HIGH DOSE) ()
     Route: 065
  83. RISPERIDONE. [Concomitant]
     Active Substance: RISPERIDONE
     Indication: PRODUCT USED FOR UNKNOWN INDICATION
     Dosage: ()
     Route: 065
  84. ARIPIPRAZOLE. [Concomitant]
     Active Substance: ARIPIPRAZOLE
     Indication: PRODUCT USED FOR UNKNOWN INDICATION
     Dosage: ()
     Route: 065
  85. QUETIAPINE. [Suspect]
     Active Substance: QUETIAPINE
     Dosage: 100 MG/D
     Route: 065
  86. QUETIAPINE. [Suspect]
     Active Substance: QUETIAPINE
     Dosage: 150 MG/D
     Route: 065
     Dates: start: 20160101
  87. QUETIAPINE. [Suspect]
     Active Substance: QUETIAPINE
     Dosage: AS HIGH AS TOLERATED ()
     Route: 065
  88. QUETIAPINE. [Suspect]
     Active Substance: QUETIAPINE
     Dosage: (HIGH DOSE) (1)
     Route: 048
     Dates: start: 2016
  89. QUETIAPINE. [Suspect]
     Active Substance: QUETIAPINE
     Dosage: AS HIGH AS TOLERATED ()
     Route: 065
  90. PAROXETINE. [Suspect]
     Active Substance: PAROXETINE
     Indication: AGITATION
     Dosage: 10 MG, QD
     Route: 065
     Dates: start: 2017
  91. LORAZEPAM. [Suspect]
     Active Substance: LORAZEPAM
     Indication: DELIRIUM
     Dosage: ()
  92. FORMOTEROL FUMARATE [Suspect]
     Active Substance: FORMOTEROL FUMARATE
     Indication: PNEUMONIA
     Dosage: 20 MG, QD
     Route: 065
     Dates: start: 201601
  93. DEXTROMETHORPHAN HYDROBROMIDE. [Suspect]
     Active Substance: DEXTROMETHORPHAN HYDROBROMIDE
     Indication: DEMENTIA WITH LEWY BODIES
     Dosage: 24 MG, QD
     Route: 065
     Dates: start: 2017
  94. FLUPENTIXOL [Suspect]
     Active Substance: FLUPENTIXOL
     Indication: PNEUMONIA
     Dosage: DOSE INCREASED
     Route: 065
  95. DRONABINOL. [Concomitant]
     Active Substance: DRONABINOL
     Dosage: 2.5 MILLIGRAM
     Route: 065
  96. RIVASTIGMINE. [Concomitant]
     Active Substance: RIVASTIGMINE
     Indication: AGGRESSION
     Dosage: ()
     Route: 065
  97. RIVASTIGMINE. [Concomitant]
     Active Substance: RIVASTIGMINE
     Indication: DEMENTIA WITH LEWY BODIES
     Dosage: ()
     Route: 065
  98. RIVASTIGMINE. [Concomitant]
     Active Substance: RIVASTIGMINE
     Dosage: ()
     Route: 065
  99. DIAZEPAM. [Concomitant]
     Active Substance: DIAZEPAM
     Indication: AGGRESSION
     Dosage: (HIGH DOSE)
     Route: 065
  100. DIAZEPAM. [Concomitant]
     Active Substance: DIAZEPAM
     Indication: DELIRIUM
     Dosage: (HIGH DOSE) ()
  101. DIAZEPAM. [Concomitant]
     Active Substance: DIAZEPAM
     Dosage: (HIGH DOSE) ()
     Route: 065
  102. DIAZEPAM. [Concomitant]
     Active Substance: DIAZEPAM
     Dosage: (HIGH DOSE) ()
  103. DONEPEZIL. [Concomitant]
     Active Substance: DONEPEZIL
     Dosage: ()
  104. DONEPEZIL. [Concomitant]
     Active Substance: DONEPEZIL
     Route: 065
  105. DONEPEZIL. [Concomitant]
     Active Substance: DONEPEZIL
     Route: 065
  106. DONEPEZIL. [Concomitant]
     Active Substance: DONEPEZIL
     Dosage: ()
     Route: 065
  107. PIPAMPERONE [Concomitant]
     Active Substance: PIPAMPERONE
     Indication: PRODUCT USED FOR UNKNOWN INDICATION
     Dosage: ()
     Route: 065

REACTIONS (14)
  - Off label use [Fatal]
  - Completed suicide [Fatal]
  - Sleep disorder [Fatal]
  - Rebound effect [Fatal]
  - Hangover [Fatal]
  - Withdrawal syndrome [Fatal]
  - Product use in unapproved indication [Fatal]
  - Aggression [Fatal]
  - Fatigue [Fatal]
  - Condition aggravated [Fatal]
  - Paradoxical drug reaction [Fatal]
  - Delirium [Fatal]
  - Paranoia [Fatal]
  - Agitation [Fatal]

NARRATIVE: CASE EVENT DATE: 2016
